FAERS Safety Report 14961892 (Version 1)
Quarter: 2018Q2

REPORT INFORMATION
  Report Type: Spontaneous
  Country: FR (occurrence: FR)
  Receive Date: 20180601
  Receipt Date: 20180601
  Transmission Date: 20180711
  Serious: Yes (Hospitalization)
  Sender: FDA-Public Use
  Company Number: FR-TEVA-2018-FR-899723

PATIENT
  Age: 83 Year
  Sex: Male
  Weight: 66.4 kg

DRUGS (4)
  1. DIFICLIR [Suspect]
     Active Substance: FIDAXOMICIN
     Indication: PSEUDOMEMBRANOUS COLITIS
     Route: 065
     Dates: start: 20180228
  2. AUGMENTIN [Suspect]
     Active Substance: AMOXICILLIN\CLAVULANATE POTASSIUM
     Indication: INFECTION
     Route: 065
     Dates: start: 20180222, end: 20180225
  3. PACLITAXEL HOSPIRA 6 MG/ML, SOLUTION ? DILUER POUR PERFUSION [Suspect]
     Active Substance: PACLITAXEL
     Indication: LUNG NEOPLASM MALIGNANT
     Route: 065
     Dates: start: 20180117, end: 20180221
  4. CARBOPLATIN. [Suspect]
     Active Substance: CARBOPLATIN
     Indication: LUNG NEOPLASM MALIGNANT
     Route: 065
     Dates: start: 20180117, end: 20180221

REACTIONS (1)
  - Hepatitis [Not Recovered/Not Resolved]

NARRATIVE: CASE EVENT DATE: 20180228
